APPROVED DRUG PRODUCT: LOPRESSOR
Active Ingredient: METOPROLOL TARTRATE
Strength: 12.5MG
Dosage Form/Route: TABLET;ORAL
Application: N218698 | Product #001
Applicant: XTM CONSULTING LLC
Approved: Aug 28, 2025 | RLD: Yes | RS: Yes | Type: RX